FAERS Safety Report 7589821-4 (Version None)
Quarter: 2011Q2

REPORT INFORMATION
  Report Type: 
  Country: None (occurrence: None)
  Receive Date: 20110627
  Receipt Date: 20110616
  Transmission Date: 20111010
  Serious: Yes (Death, Hospitalization)
  Sender: FDA-Public Use
  Company Number: 118589

PATIENT
  Age: 54 Year
  Sex: Male

DRUGS (1)
  1. BUPRENORPHINE HCL [Suspect]
     Indication: PAIN
     Dosage: 25 UG TOP
     Route: 061

REACTIONS (8)
  - RHABDOMYOLYSIS [None]
  - RESPIRATORY FAILURE [None]
  - ANURIA [None]
  - HAEMODIALYSIS [None]
  - METABOLIC DISORDER [None]
  - CARDIAC ARREST [None]
  - SEPTIC SHOCK [None]
  - RENAL FAILURE ACUTE [None]
